FAERS Safety Report 25265846 (Version 1)
Quarter: 2025Q2

REPORT INFORMATION
  Report Type: Spontaneous
  Country: IL (occurrence: IL)
  Receive Date: 20250503
  Receipt Date: 20250503
  Transmission Date: 20250716
  Serious: Yes (Other)
  Sender: OXFORD PHARMACEUTICALS, LLC
  Company Number: IL-Oxford Pharmaceuticals, LLC-2176096

PATIENT
  Age: 37 Year
  Sex: Female

DRUGS (2)
  1. LEVETIRACETAM [Suspect]
     Active Substance: LEVETIRACETAM
     Indication: Epilepsy
  2. PHENYTOIN [Concomitant]
     Active Substance: PHENYTOIN

REACTIONS (3)
  - Seizure [Unknown]
  - Drug ineffective [Unknown]
  - Condition aggravated [Unknown]
